FAERS Safety Report 20843814 (Version 1)
Quarter: 2022Q2

REPORT INFORMATION
  Report Type: Spontaneous
  Country: US (occurrence: US)
  Receive Date: 20220518
  Receipt Date: 20220518
  Transmission Date: 20220720
  Serious: No
  Sender: FDA-Public Use
  Company Number: US-BAYER-2022A071047

PATIENT
  Age: 10 Month
  Sex: Male

DRUGS (1)
  1. CHILDREN CLARITIN ALLERGY [Suspect]
     Active Substance: LORATADINE
     Indication: Prophylaxis
     Dosage: 2.5 ML
     Route: 048
     Dates: start: 20220517, end: 20220517

REACTIONS (1)
  - Extra dose administered [Recovering/Resolving]

NARRATIVE: CASE EVENT DATE: 20220517
